FAERS Safety Report 16400330 (Version 1)
Quarter: 2019Q2

REPORT INFORMATION
  Report Type: Spontaneous
  Country: US (occurrence: US)
  Receive Date: 20190606
  Receipt Date: 20190606
  Transmission Date: 20190711
  Serious: No
  Sender: FDA-Public Use
  Company Number: US-ALLERGAN-1847448US

PATIENT
  Sex: Female

DRUGS (1)
  1. KYBELLA [Suspect]
     Active Substance: DEOXYCHOLIC ACID
     Indication: FAT TISSUE INCREASED
     Dosage: UNK UNK, SINGLE
     Route: 058
     Dates: start: 201808, end: 201808

REACTIONS (6)
  - Paraesthesia oral [Unknown]
  - Injection site ulcer [Recovering/Resolving]
  - Injection site scar [Unknown]
  - Pain [Unknown]
  - Incorrect route of product administration [Unknown]
  - Injection site induration [Unknown]

NARRATIVE: CASE EVENT DATE: 201808
